FAERS Safety Report 8900977 (Version 1)
Quarter: 2012Q4

REPORT INFORMATION
  Report Type: 
  Country: US (occurrence: US)
  Receive Date: 20121109
  Receipt Date: 20121109
  Transmission Date: 20130627
  Serious: Yes (Hospitalization)
  Sender: FDA-Public Use
  Company Number: US-ACTELION-A-US2012-69721

PATIENT
  Age: 71 Year
  Sex: Female

DRUGS (4)
  1. VELETRI [Suspect]
     Indication: PULMONARY ARTERIAL HYPERTENSION
     Dosage: 70 ng/kg, UNK
     Route: 042
     Dates: start: 20120717
  2. VELETRI [Suspect]
     Dosage: 60 ng/kg, per min
     Route: 042
     Dates: start: 20120627
  3. LETAIRIS [Concomitant]
  4. COUMADIN [Concomitant]

REACTIONS (8)
  - Anxiety [Unknown]
  - Dyspnoea [Unknown]
  - Condition aggravated [Unknown]
  - Palpitations [Unknown]
  - Decreased appetite [Unknown]
  - Retching [Unknown]
  - Hyperventilation [Unknown]
  - Nausea [Unknown]
